FAERS Safety Report 6909295-3 (Version None)
Quarter: 2010Q3

REPORT INFORMATION
  Report Type: 
  Country: None (occurrence: None)
  Receive Date: 20100805
  Receipt Date: 20100726
  Transmission Date: 20110219
  Serious: Yes (Other)
  Sender: FDA-Public Use
  Company Number: PHHY2010DE50352

PATIENT
  Age: 73 Year
  Sex: Male

DRUGS (1)
  1. SANDIMMUNE [Suspect]
     Indication: APLASTIC ANAEMIA
     Dosage: 75 MG DAILY (50 MG-0-25 MG)
     Route: 048
     Dates: start: 20060201

REACTIONS (2)
  - PARKINSON'S DISEASE [None]
  - TREMOR [None]
